FAERS Safety Report 7474644-7 (Version None)
Quarter: 2011Q2

REPORT INFORMATION
  Report Type: 
  Country: None (occurrence: None)
  Receive Date: 20110512
  Receipt Date: 20110427
  Transmission Date: 20111010
  Serious: Yes (Hospitalization, Other)
  Sender: FDA-Public Use
  Company Number: KR-JNJFOC-20110500648

PATIENT
  Age: 22 Year
  Sex: Male

DRUGS (3)
  1. RISPERDAL [Suspect]
     Indication: BIPOLAR I DISORDER
     Route: 048
  2. DEPAKOTE [Suspect]
     Indication: BIPOLAR I DISORDER
     Route: 048
  3. DEPAKOTE [Suspect]
     Route: 048

REACTIONS (3)
  - HOSPITALISATION [None]
  - INSOMNIA [None]
  - CONDITION AGGRAVATED [None]
